FAERS Safety Report 8252333-9 (Version None)
Quarter: 2012Q2

REPORT INFORMATION
  Report Type: 
  Country: None (occurrence: None)
  Receive Date: 20120402
  Receipt Date: 20110503
  Transmission Date: 20120825
  Serious: No
  Sender: FDA-Public Use
  Company Number: US-ABBOTT-11P-163-0804529-00

PATIENT
  Sex: Male
  Weight: 88.636 kg

DRUGS (2)
  1. MOMETASONE FUROATE [Concomitant]
     Indication: HYPERSENSITIVITY
     Dosage: DAILY DOSE:  UNKNOWN
     Route: 065
  2. TESTOSTERONE [Suspect]
     Indication: BLOOD TESTOSTERONE DECREASED
     Dosage: DAILY DOSE:  UNKNOWN; 4 PUMPS, FREQUENCY: 1 DAY
     Route: 062
     Dates: start: 20110201

REACTIONS (1)
  - MUSCLE SPASMS [None]
